FAERS Safety Report 24361219 (Version 1)
Quarter: 2024Q3

REPORT INFORMATION
  Report Type: Spontaneous
  Country: NL (occurrence: NL)
  Receive Date: 20240925
  Receipt Date: 20240925
  Transmission Date: 20241016
  Serious: Yes (Death, Other)
  Sender: AUROBINDO
  Company Number: NL-AMGEN-NLDSP2024112610

PATIENT
  Age: 60 Year
  Sex: Female

DRUGS (5)
  1. CINACALCET [Suspect]
     Active Substance: CINACALCET
     Indication: Hyperparathyroidism primary
     Dosage: UNK
     Route: 065
  2. XGEVA [Suspect]
     Active Substance: DENOSUMAB
     Indication: Hypercalcaemia
     Dosage: 60 MILLIGRAM
     Route: 065
  3. XGEVA [Suspect]
     Active Substance: DENOSUMAB
     Dosage: 120 MILLIGRAM
     Route: 065
  4. CALCITONIN [Concomitant]
     Active Substance: CALCITONIN
     Indication: Hypercalcaemia
     Dosage: UNK
     Route: 065
  5. PAMIDRONATE DISODIUM [Concomitant]
     Active Substance: PAMIDRONATE DISODIUM
     Indication: Hypercalcaemia
     Dosage: UNK
     Route: 065

REACTIONS (16)
  - Disease progression [Fatal]
  - Adult T-cell lymphoma/leukaemia [Unknown]
  - Ascites [Unknown]
  - Thrombocytopenia [Unknown]
  - Anaemia macrocytic [Unknown]
  - Blood lactate dehydrogenase increased [Unknown]
  - Blood parathyroid hormone increased [Unknown]
  - Deltaretrovirus test positive [Unknown]
  - Hypercalcaemia [Unknown]
  - Hypocalcaemia [Unknown]
  - Leukocytosis [Unknown]
  - Lymphocytosis [Unknown]
  - Papule [Unknown]
  - Parathyroid hormone-related protein increased [Unknown]
  - Skin exfoliation [Unknown]
  - Splenomegaly [Unknown]
